FAERS Safety Report 17581941 (Version 1)
Quarter: 2020Q1

REPORT INFORMATION
  Report Type: Spontaneous
  Country: US (occurrence: US)
  Receive Date: 20200323
  Receipt Date: 20200323
  Transmission Date: 20200409
  Serious: No
  Sender: FDA-Public Use
  Company Number: None

PATIENT
  Sex: Female

DRUGS (1)
  1. ENBREL [Suspect]
     Active Substance: ETANERCEPT
     Indication: RHEUMATOID ARTHRITIS
     Dosage: ?          OTHER STRENGTH:25MG/0.5ML;OTHER FREQUENCY:EVERY 7 DAYS;?
     Route: 058
     Dates: start: 20170317

REACTIONS (2)
  - Therapy cessation [None]
  - Cough [None]
